FAERS Safety Report 5191106-0 (Version None)
Quarter: 2006Q4

REPORT INFORMATION
  Report Type: 
  Country: None (occurrence: None)
  Receive Date: 20061226
  Receipt Date: 20061030
  Transmission Date: 20070319
  Serious: Yes (Other)
  Sender: FDA-Public Use
  Company Number: PHEH2006US13526

PATIENT
  Age: 25 Year
  Sex: Female

DRUGS (1)
  1. LAMISIL [Suspect]
     Indication: NAIL TINEA
     Dosage: 250 MG, QD
     Route: 048
     Dates: start: 20060816, end: 20061025

REACTIONS (4)
  - ECZEMA NUMMULAR [None]
  - PAIN [None]
  - PRURITUS [None]
  - RASH [None]
